FAERS Safety Report 20050748 (Version 2)
Quarter: 2022Q1

REPORT INFORMATION
  Report Type: Spontaneous
  Country: US (occurrence: US)
  Receive Date: 20211110
  Receipt Date: 20220216
  Transmission Date: 20220423
  Serious: No
  Sender: FDA-Public Use
  Company Number: US-BRISTOL-MYERS SQUIBB COMPANY-BMS-2021-112019

PATIENT
  Age: 74 Year
  Sex: Male

DRUGS (1)
  1. YERVOY [Suspect]
     Active Substance: IPILIMUMAB
     Indication: Lung neoplasm malignant
     Dosage: 85 MILLIGRAM, Q6WK
     Route: 042

REACTIONS (1)
  - Intentional product use issue [Unknown]
